FAERS Safety Report 5379534-1 (Version None)
Quarter: 2007Q3

REPORT INFORMATION
  Report Type: 
  Country: None (occurrence: None)
  Receive Date: 20070703
  Receipt Date: 20070618
  Transmission Date: 20080115
  Serious: Yes (Hospitalization, Other)
  Sender: FDA-Public Use
  Company Number: US-CVT-070119

PATIENT
  Age: 79 Year
  Sex: Male
  Weight: 75.7 kg

DRUGS (15)
  1. RANEXA [Suspect]
     Indication: ANGINA PECTORIS
     Dosage: 500 MG, QD, ORAL
     Route: 048
     Dates: start: 20061206, end: 20061213
  2. MEVACOR [Suspect]
     Dosage: 40 MG, QD, ORAL
     Route: 048
  3. TOPROL-XL [Concomitant]
  4. NITROGLYCERIN [Concomitant]
  5. PLAVIX [Concomitant]
  6. MULTIVITAMIN [Concomitant]
  7. COENZYME Q10 [Concomitant]
  8. DIOVAN /01319601/ (VALSARTAN) [Concomitant]
  9. ZANTAC [Concomitant]
  10. ASPIRIN [Concomitant]
  11. FLOMAX /00889901/ (MORNIFLUMATE) [Concomitant]
  12. GLUCOPHAGE /00082701/ (METFORMIN) [Concomitant]
  13. MAXEPA /00861501/ (CITRIC ACID, FATTY ACIDS NOS, GLUCOSE, INSULIN, INS [Concomitant]
  14. FOLTX (CYANOCOBALAMIN, FOLIC ACID, PYRIDOXINE) [Concomitant]
  15. LYCOPENE (LYCOPENE) [Concomitant]

REACTIONS (14)
  - ALANINE AMINOTRANSFERASE INCREASED [None]
  - ASPARTATE AMINOTRANSFERASE INCREASED [None]
  - BLOOD PRESSURE ABNORMAL [None]
  - DILATATION VENTRICULAR [None]
  - DRUG INTERACTION [None]
  - FEELING ABNORMAL [None]
  - HYPOKALAEMIA [None]
  - INSOMNIA [None]
  - MALAISE [None]
  - MYOCARDIAL INFARCTION [None]
  - MYOCARDIAL ISCHAEMIA [None]
  - RENAL FAILURE ACUTE [None]
  - RHABDOMYOLYSIS [None]
  - STENT OCCLUSION [None]
